FAERS Safety Report 20532460 (Version 1)
Quarter: 2022Q1

REPORT INFORMATION
  Report Type: Spontaneous
  Country: US (occurrence: None)
  Receive Date: 20220228
  Receipt Date: 20220228
  Transmission Date: 20220423
  Serious: No
  Sender: FDA-Public Use
  Company Number: None

PATIENT
  Age: 38 Year
  Sex: Female
  Weight: 108 kg

DRUGS (6)
  1. DEXTROAMPHET SACCHARAT, AMPHET ASPARTATE, DEXTROAMPHET SULFATE AND AMP [Suspect]
     Active Substance: AMPHETAMINE ASPARTATE\AMPHETAMINE SULFATE\DEXTROAMPHETAMINE SACCHARATE\DEXTROAMPHETAMINE SULFATE
     Indication: Attention deficit hyperactivity disorder
     Dosage: OTHER QUANTITY : 1 TABLET(S);?FREQUENCY : 3 TIMES A DAY;?
     Route: 048
     Dates: start: 20220222, end: 20220228
  2. ADDERALL [Concomitant]
     Active Substance: AMPHETAMINE ASPARTATE\AMPHETAMINE SULFATE\DEXTROAMPHETAMINE SACCHARATE\DEXTROAMPHETAMINE SULFATE
  3. TEMAZEPAM [Concomitant]
     Active Substance: TEMAZEPAM
  4. BUPROPION [Concomitant]
     Active Substance: BUPROPION
  5. MAGNESIUM [Concomitant]
     Active Substance: MAGNESIUM
  6. daily women^s vitamin [Concomitant]

REACTIONS (7)
  - Headache [None]
  - Somnolence [None]
  - Therapeutic product effect decreased [None]
  - Pain [None]
  - Feeling abnormal [None]
  - Insomnia [None]
  - Malaise [None]

NARRATIVE: CASE EVENT DATE: 20220222
